FAERS Safety Report 14707840 (Version 1)
Quarter: 2018Q2

REPORT INFORMATION
  Report Type: Spontaneous
  Country: DE (occurrence: DE)
  Receive Date: 20180403
  Receipt Date: 20180403
  Transmission Date: 20180711
  Serious: Yes (Hospitalization)
  Sender: FDA-Public Use
  Company Number: DE-MERCK KGAA-2044989

PATIENT
  Age: 42 Year
  Sex: Female

DRUGS (9)
  1. NOVOTHYROX [Suspect]
     Active Substance: LEVOTHYROXINE SODIUM
     Indication: HYPOTHYROIDISM
     Route: 048
  2. RISPERIDONE. [Suspect]
     Active Substance: RISPERIDONE
     Route: 048
     Dates: start: 20160601, end: 20170321
  3. RISPERIDONE. [Suspect]
     Active Substance: RISPERIDONE
     Route: 048
     Dates: start: 20170322
  4. VENLAFAXINE [Suspect]
     Active Substance: VENLAFAXINE HYDROCHLORIDE
     Route: 048
     Dates: start: 20160601, end: 20170308
  5. ARIPIPRAZOLE. [Suspect]
     Active Substance: ARIPIPRAZOLE
     Route: 048
     Dates: start: 20160601
  6. VENLAFAXINE [Suspect]
     Active Substance: VENLAFAXINE HYDROCHLORIDE
     Route: 048
     Dates: start: 20170309, end: 20170310
  7. VENLAFAXINE [Suspect]
     Active Substance: VENLAFAXINE HYDROCHLORIDE
     Route: 048
     Dates: start: 20170311, end: 20170313
  8. BIPERIDEN [Suspect]
     Active Substance: BIPERIDEN
     Route: 048
     Dates: start: 20160601
  9. LAMOTRIGIN [Suspect]
     Active Substance: LAMOTRIGINE
     Route: 048
     Dates: start: 20160601

REACTIONS (4)
  - Inappropriate affect [Unknown]
  - Logorrhoea [Unknown]
  - Urinary incontinence [Recovered/Resolved]
  - Urinary tract infection [Recovered/Resolved]

NARRATIVE: CASE EVENT DATE: 20161101
